FAERS Safety Report 6039714-9 (Version None)
Quarter: 2009Q1

REPORT INFORMATION
  Report Type: 
  Country: None (occurrence: None)
  Receive Date: 20090116
  Receipt Date: 20090107
  Transmission Date: 20090719
  Serious: Yes (Disabling, Other)
  Sender: FDA-Public Use
  Company Number: PHEH2009US00618

PATIENT
  Sex: Female

DRUGS (5)
  1. AREDIA [Suspect]
     Indication: LYMPHOMA
     Dosage: 90 MG, QMO
     Dates: start: 20061001, end: 20070101
  2. ZOMETA [Suspect]
     Dosage: 4 MG, QMO
     Dates: start: 20070201, end: 20070301
  3. METHOTREXATE [Concomitant]
  4. CIPROFLOXACIN HCL [Concomitant]
  5. CLINDAMYCIN HCL [Concomitant]

REACTIONS (6)
  - BONE DISORDER [None]
  - IMPAIRED HEALING [None]
  - OEDEMA MOUTH [None]
  - ORAL CAVITY FISTULA [None]
  - ORAL PAIN [None]
  - OSTEOSCLEROSIS [None]
